FAERS Safety Report 6294811-8 (Version None)
Quarter: 2009Q3

REPORT INFORMATION
  Report Type: 
  Country: None (occurrence: None)
  Receive Date: 20090731
  Receipt Date: 20090731
  Transmission Date: 20100115
  Serious: Yes (Death)
  Sender: FDA-Public Use
  Company Number: None

PATIENT
  Age: 25 Year
  Sex: Male

DRUGS (4)
  1. FLUOXETINE [Suspect]
     Indication: DEPRESSION
     Dosage: 20MG (20 MG, 1 IN 1 D), ORAL 11/2005 - STOPPED
     Route: 048
     Dates: start: 20051101
  2. FLUOXETINE [Suspect]
     Indication: PARANOIA
     Dosage: 20MG (20 MG, 1 IN 1 D), ORAL 11/2005 - STOPPED
     Route: 048
     Dates: start: 20051101
  3. OLANZAPINE [Suspect]
     Indication: DEPRESSION
     Dosage: QHS (15 MG), ORAL 04/2004 - STOPPED
     Route: 048
     Dates: start: 20040401
  4. OLANZAPINE [Suspect]
     Indication: PARANOIA
     Dosage: QHS (15 MG), ORAL 04/2004 - STOPPED
     Route: 048
     Dates: start: 20040401

REACTIONS (3)
  - COMPLETED SUICIDE [None]
  - GUN SHOT WOUND [None]
  - SCHIZOPHRENIFORM DISORDER [None]
